FAERS Safety Report 9304053 (Version 1)
Quarter: 2013Q2

REPORT INFORMATION
  Report Type: Report from Study
  Country: US (occurrence: US)
  Receive Date: 20130522
  Receipt Date: 20130522
  Transmission Date: 20140414
  Serious: Yes (Hospitalization, Other)
  Sender: FDA-Public Use
  Company Number: US-ABBOTT-13P-163-1090658-00

PATIENT
  Age: 46 Year
  Sex: Male

DRUGS (13)
  1. HUMIRA [Suspect]
     Indication: CROHN^S DISEASE
  2. HUMIRA [Suspect]
     Dosage: RESTARTED
  3. HUMIRA [Suspect]
     Dosage: FEW INJECTIONS
     Dates: start: 20130508, end: 20130508
  4. HUMIRA [Suspect]
     Dosage: 1 INJECTION
     Dates: start: 20130509, end: 20130509
  5. HUMIRA [Suspect]
     Dates: start: 20130506
  6. NEXIUM [Concomitant]
     Indication: PRODUCT USED FOR UNKNOWN INDICATION
  7. ATIVAN [Concomitant]
     Indication: PRODUCT USED FOR UNKNOWN INDICATION
  8. NORCO [Concomitant]
     Indication: PRODUCT USED FOR UNKNOWN INDICATION
     Dosage: 10/325MG QID
  9. MORPHINE [Concomitant]
     Indication: BREAKTHROUGH PAIN
     Dosage: LIQUID
  10. MARINOL [Concomitant]
     Indication: PRODUCT USED FOR UNKNOWN INDICATION
  11. ZOFRAN [Concomitant]
     Indication: PRODUCT USED FOR UNKNOWN INDICATION
  12. PHENERGAN [Concomitant]
     Indication: PRODUCT USED FOR UNKNOWN INDICATION
  13. MAXALT [Concomitant]
     Indication: MIGRAINE

REACTIONS (13)
  - Hypotension [Unknown]
  - Weight decreased [Unknown]
  - Crohn^s disease [Not Recovered/Not Resolved]
  - Crohn^s disease [Not Recovered/Not Resolved]
  - Drug ineffective [Unknown]
  - Malaise [Unknown]
  - Dehydration [Unknown]
  - Vomiting [Unknown]
  - Diarrhoea [Unknown]
  - Candida infection [Unknown]
  - Oral pain [Unknown]
  - Stomatitis [Unknown]
  - Fatigue [Unknown]
